FAERS Safety Report 9852368 (Version 3)
Quarter: 2014Q1

REPORT INFORMATION
  Report Type: Spontaneous
  Country: FR (occurrence: FR)
  Receive Date: 20140129
  Receipt Date: 20140203
  Transmission Date: 20141002
  Serious: Yes (Death)
  Sender: FDA-Public Use
  Company Number: FR-ASTELLAS-2013EU007810

PATIENT
  Age: 73 Year
  Sex: Female

DRUGS (11)
  1. PROGRAF [Suspect]
     Indication: LIVER TRANSPLANT
     Dosage: 0.5 MG, BID
     Route: 048
     Dates: start: 2002
  2. PROGRAF [Suspect]
     Dosage: UNK
     Route: 050
     Dates: end: 20131214
  3. FUNGIZONE [Concomitant]
     Dosage: UNK
     Route: 065
  4. CIPROFLOXACIN [Concomitant]
     Dosage: UNK
     Route: 065
  5. LEVOTHYROX [Concomitant]
     Dosage: 25 UG, UID/QD
     Route: 048
  6. PERINDOPRIL [Concomitant]
     Indication: HYPERTENSION
     Dosage: 4 MG, UID/QD
     Route: 048
  7. TOPALGIC LP [Concomitant]
     Indication: PAIN
     Dosage: 150 MG, BID
     Route: 048
  8. LYRICA [Concomitant]
     Dosage: 100 MG, BID
     Route: 048
  9. UMULINE PROFIL [Concomitant]
     Dosage: UNK
     Route: 042
  10. PARIET [Concomitant]
     Dosage: 20 MG, UID/QD
     Route: 048
  11. SPASFON                            /00934601/ [Concomitant]
     Dosage: 2 DF, TID
     Route: 048

REACTIONS (2)
  - Incorrect route of drug administration [Unknown]
  - Adenocarcinoma of colon [Fatal]
